FAERS Safety Report 16741273 (Version 1)
Quarter: 2019Q3

REPORT INFORMATION
  Report Type: Report from Study
  Country: AT (occurrence: AT)
  Receive Date: 20190826
  Receipt Date: 20190826
  Transmission Date: 20191005
  Serious: Yes (Hospitalization)
  Sender: FDA-Public Use
  Company Number: AT-EISAI MEDICAL RESEARCH-EC-2019-061146

PATIENT
  Age: 58 Year
  Sex: Female
  Weight: 75.9 kg

DRUGS (12)
  1. LORAZEPAM. [Concomitant]
     Active Substance: LORAZEPAM
     Dates: start: 20190711
  2. XARELTO [Concomitant]
     Active Substance: RIVAROXABAN
     Dates: start: 20190629
  3. ASMOL [Concomitant]
     Dates: start: 201905
  4. LENVATINIB [Suspect]
     Active Substance: LENVATINIB
     Route: 048
     Dates: start: 20190711, end: 20190730
  5. ATIVAN [Concomitant]
     Active Substance: LORAZEPAM
     Dates: start: 20190701
  6. SALPRAZ [Concomitant]
     Dates: start: 201601
  7. LENVATINIB [Suspect]
     Active Substance: LENVATINIB
     Indication: OVARIAN CANCER
     Dosage: STARTING DOSE AT 20 MILLIGRAM, FLUCTUATED DOSES
     Route: 048
     Dates: start: 20190619, end: 20190625
  8. PEMBROLIZUMAB. [Suspect]
     Active Substance: PEMBROLIZUMAB
     Indication: OVARIAN CANCER
     Route: 041
     Dates: start: 20190619, end: 20190711
  9. MAGNESIUM [Concomitant]
     Active Substance: MAGNESIUM
     Dates: start: 201905
  10. GLUCOSAMINE [Concomitant]
     Active Substance: GLUCOSAMINE
     Dates: start: 201905
  11. PANADOL [Concomitant]
     Active Substance: ACETAMINOPHEN
     Dates: start: 201905
  12. PEMBROLIZUMAB. [Suspect]
     Active Substance: PEMBROLIZUMAB
     Route: 041
     Dates: start: 20190731, end: 20190731

REACTIONS (1)
  - Bone marrow failure [Not Recovered/Not Resolved]

NARRATIVE: CASE EVENT DATE: 20190821
